FAERS Safety Report 5285343-4 (Version None)
Quarter: 2007Q2

REPORT INFORMATION
  Report Type: 
  Country: None (occurrence: None)
  Receive Date: 20070403
  Receipt Date: 20070327
  Transmission Date: 20071010
  Serious: Yes (Hospitalization)
  Sender: FDA-Public Use
  Company Number: GR-ABBOTT-07P-066-0359015-00

PATIENT
  Age: 67 Year
  Sex: Female

DRUGS (3)
  1. HUMIRA [Suspect]
     Indication: PSORIATIC ARTHROPATHY
     Route: 058
     Dates: start: 20061221, end: 20070201
  2. METHOTREXATE SODIUM [Concomitant]
     Indication: PSORIATIC ARTHROPATHY
     Route: 048
     Dates: start: 19980101, end: 20061221
  3. FILLICINE [Concomitant]
     Indication: PSORIATIC ARTHROPATHY
     Route: 048
     Dates: start: 19980101, end: 20061221

REACTIONS (5)
  - HEPATIC ENZYME INCREASED [None]
  - LOWER RESPIRATORY TRACT INFECTION [None]
  - MENINGITIS MENINGOCOCCAL [None]
  - PYREXIA [None]
  - VOMITING [None]
